FAERS Safety Report 6856594-X (Version None)
Quarter: 2010Q3

REPORT INFORMATION
  Report Type: 
  Country: None (occurrence: None)
  Receive Date: 20100719
  Receipt Date: 20100707
  Transmission Date: 20110219
  Serious: Yes (Other)
  Sender: FDA-Public Use
  Company Number: MX-ROCHE-715262

PATIENT
  Age: 68 Year
  Sex: Female

DRUGS (1)
  1. TRASTUZUMAB [Suspect]
     Indication: BREAST CANCER
     Route: 042

REACTIONS (6)
  - CARDIAC DISORDER [None]
  - DIZZINESS [None]
  - HEADACHE [None]
  - LIVER DISORDER [None]
  - RENAL DISORDER [None]
  - VOMITING [None]
